FAERS Safety Report 8270558-3 (Version None)
Quarter: 2012Q2

REPORT INFORMATION
  Report Type: 
  Country: None (occurrence: None)
  Receive Date: 20120410
  Receipt Date: 20120402
  Transmission Date: 20120825
  Serious: Yes (Life-Threatening, Hospitalization, Other)
  Sender: FDA-Public Use
  Company Number: SE-ELI_LILLY_AND_COMPANY-SE201203008346

PATIENT
  Sex: Male
  Weight: 87.5 kg

DRUGS (3)
  1. KALCIUM D-VITAMIN [Concomitant]
     Dosage: UNK
     Dates: start: 20111020
  2. TERIPARATIDE [Suspect]
     Indication: OSTEOPOROSIS
     Dosage: UNK
     Route: 058
     Dates: start: 20111020, end: 20120326
  3. ACETAMINOPHEN [Concomitant]
     Indication: PAIN
     Dosage: UNK
     Dates: start: 20110513

REACTIONS (2)
  - INTERSTITIAL LUNG DISEASE [None]
  - ALVEOLITIS [None]
